FAERS Safety Report 5481559-2 (Version None)
Quarter: 2007Q4

REPORT INFORMATION
  Report Type: 
  Country: None (occurrence: None)
  Receive Date: 20071005
  Receipt Date: 20071005
  Transmission Date: 20080405
  Serious: No
  Sender: FDA-Public Use
  Company Number: None

PATIENT

DRUGS (1)
  1. CHANTIX [Suspect]
     Dates: start: 20070701, end: 20070909

REACTIONS (4)
  - DEPRESSION [None]
  - HEADACHE [None]
  - HEART RATE INCREASED [None]
  - MEDICATION ERROR [None]
